FAERS Safety Report 18649561 (Version 1)
Quarter: 2020Q4

REPORT INFORMATION
  Report Type: Spontaneous
  Country: US (occurrence: US)
  Receive Date: 20201222
  Receipt Date: 20201222
  Transmission Date: 20210114
  Serious: Yes (Disabling)
  Sender: FDA-Public Use
  Company Number: US-TEVA-2020-US-1861958

PATIENT
  Age: 49 Year
  Sex: Female

DRUGS (10)
  1. VITAMIN D [Concomitant]
     Active Substance: VITAMIN D NOS
  2. AMLODIPINE [Concomitant]
     Active Substance: AMLODIPINE BESYLATE
  3. TAXOL [Concomitant]
     Active Substance: PACLITAXEL
     Indication: BREAST CANCER FEMALE
     Dosage: DOSAGE: UNKNOWN: NUMBER OF CYCLES: 2; EVERY THREE WEEKS
     Dates: start: 20150708, end: 20150728
  4. LOVASTATIN. [Concomitant]
     Active Substance: LOVASTATIN
  5. ANASTROZOLE. [Concomitant]
     Active Substance: ANASTROZOLE
  6. ADRIAMYCIN [Concomitant]
     Active Substance: DOXORUBICIN HYDROCHLORIDE
     Indication: BREAST CANCER FEMALE
     Dosage: DOSAGE: UNKNOWN: NUMBER OF CYCLES: 4; EVERY THREE WEEKS
     Dates: start: 20150708, end: 20150728
  7. ROSARTIN [Concomitant]
  8. DOCETAXEL. [Suspect]
     Active Substance: DOCETAXEL
     Indication: BREAST CANCER FEMALE
     Dosage: DOSAGE: 220MG: NUMBER OF CYCLES: 2; EVERY THREE WEEKS
     Route: 065
     Dates: start: 20150708, end: 20150728
  9. CALCIUM [Concomitant]
     Active Substance: CALCIUM
  10. NEOSAR [Concomitant]
     Active Substance: CYCLOPHOSPHAMIDE
     Indication: BREAST CANCER FEMALE
     Dosage: DOSAGE: UNKNOWN: NUMBER OF CYCLES: 4; EVERY THREE WEEKS
     Dates: start: 20150708, end: 20150728

REACTIONS (4)
  - Hair colour changes [Not Recovered/Not Resolved]
  - Hair texture abnormal [Not Recovered/Not Resolved]
  - Madarosis [Not Recovered/Not Resolved]
  - Alopecia [Not Recovered/Not Resolved]

NARRATIVE: CASE EVENT DATE: 2016
